FAERS Safety Report 21422957 (Version 1)
Quarter: 2022Q4

REPORT INFORMATION
  Report Type: Spontaneous
  Country: SI (occurrence: SI)
  Receive Date: 20221007
  Receipt Date: 20221007
  Transmission Date: 20230113
  Serious: Yes (Other)
  Sender: FDA-Public Use
  Company Number: SI-002147023-NVSC2022SI218949

PATIENT
  Age: 76 Year
  Sex: Female

DRUGS (4)
  1. BOSUTINIB [Suspect]
     Active Substance: BOSUTINIB
     Route: 065
     Dates: start: 20201125
  2. HYDROXYUREA [Suspect]
     Active Substance: HYDROXYUREA
     Route: 065
  3. TASIGNA [Suspect]
     Active Substance: NILOTINIB
     Indication: Chronic myeloid leukaemia
     Dosage: 2 DOSAGE FORM (2 X 300 MG)
     Route: 065
     Dates: start: 20201109
  4. GLICLAZIDE [Suspect]
     Active Substance: GLICLAZIDE
     Route: 065
     Dates: start: 20220127

REACTIONS (5)
  - Blood pressure increased [Unknown]
  - Cytogenetic analysis abnormal [Unknown]
  - Haemoglobin decreased [Recovering/Resolving]
  - White blood cell disorder [Unknown]
  - Photosensitivity reaction [Unknown]

NARRATIVE: CASE EVENT DATE: 20210331
